FAERS Safety Report 6529295-5 (Version None)
Quarter: 2010Q1

REPORT INFORMATION
  Report Type: 
  Country: None (occurrence: None)
  Receive Date: 20100107
  Receipt Date: 20091228
  Transmission Date: 20100710
  Serious: Yes (Hospitalization)
  Sender: FDA-Public Use
  Company Number: PHHY2009FR59306

PATIENT
  Age: 66 Year

DRUGS (4)
  1. TEGRETOL [Suspect]
     Dosage: 200 MG, BID
     Route: 048
     Dates: start: 20091110, end: 20091112
  2. DOLIPRANE [Suspect]
     Dosage: 1 G, TID
     Route: 048
     Dates: start: 20091110, end: 20091112
  3. AUGMENTIN [Concomitant]
     Dosage: 1 G/200 MG, UNK
     Route: 042
     Dates: start: 20091110, end: 20091112
  4. URBANYL [Concomitant]
     Dosage: 10 MG, BID
     Route: 048
     Dates: start: 20091107

REACTIONS (5)
  - BLOOD BLISTER [None]
  - DRUG ERUPTION [None]
  - HAEMOGLOBIN DECREASED [None]
  - INFLAMMATION [None]
  - PURPURA [None]
